FAERS Safety Report 17432646 (Version 2)
Quarter: 2020Q1

REPORT INFORMATION
  Report Type: Spontaneous
  Country: TW (occurrence: TW)
  Receive Date: 20200218
  Receipt Date: 20200310
  Transmission Date: 20200409
  Serious: Yes (Hospitalization)
  Sender: FDA-Public Use
  Company Number: TW-PRINSTON PHARMACEUTICAL INC.-2020PRN00052

PATIENT
  Age: 52 Year
  Sex: Female

DRUGS (5)
  1. AMARYL [Concomitant]
     Active Substance: GLIMEPIRIDE
     Dosage: 4 MG, 1X/DAY (^2 MG 2#QD^)
     Route: 065
  2. METFORMIN HYDROCHLORIDE. [Suspect]
     Active Substance: METFORMIN HYDROCHLORIDE
     Indication: TYPE 2 DIABETES MELLITUS
     Dosage: 1500 MG, 1X/DAY (^500/1000/500 MG TIDPC^)
     Route: 048
     Dates: start: 20180427, end: 20180601
  3. SIROLIMUS. [Concomitant]
     Active Substance: SIROLIMUS
     Dosage: 1 MG, EVERY 48 HOURS (^QOD^)
     Route: 065
  4. JANUVIA [Concomitant]
     Active Substance: SITAGLIPTIN PHOSPHATE
     Dosage: 100 MG, 1X/DAY
     Route: 065
  5. TACROLIMUS. [Concomitant]
     Active Substance: TACROLIMUS
     Dosage: 2 MG, 1X/DAY (^1MG/0.5MG EVERY 12 HOURS^)
     Route: 065

REACTIONS (1)
  - MELAS syndrome [Recovering/Resolving]

NARRATIVE: CASE EVENT DATE: 20180727
